FAERS Safety Report 20341001 (Version 1)
Quarter: 2022Q1

REPORT INFORMATION
  Report Type: Spontaneous
  Country: US (occurrence: US)
  Receive Date: 20220117
  Receipt Date: 20220117
  Transmission Date: 20220424
  Serious: No
  Sender: FDA-Public Use
  Company Number: US-TEVA-2022-US-1998549

PATIENT
  Age: 46 Year
  Sex: Female

DRUGS (8)
  1. AJOVY [Suspect]
     Active Substance: FREMANEZUMAB-VFRM
     Indication: Migraine
     Dosage: FREQUENCY: MONTHLY
     Route: 065
     Dates: start: 20211014
  2. AJOVY [Suspect]
     Active Substance: FREMANEZUMAB-VFRM
  3. ATENOLOL [Concomitant]
     Active Substance: ATENOLOL
  4. ESTRADIOL [Concomitant]
     Active Substance: ESTRADIOL
  5. Npthyroid [Concomitant]
  6. PROGESTERONE [Concomitant]
     Active Substance: PROGESTERONE
  7. FLUTICASONE PROPIONATE [Concomitant]
     Active Substance: FLUTICASONE PROPIONATE
     Dosage: AS NEEDED
  8. UBRELVY [Concomitant]
     Active Substance: UBROGEPANT
     Dosage: 100 MG UP TO 200 MG NINE TIMES A MONTH

REACTIONS (5)
  - Chest discomfort [Unknown]
  - Anxiety [Unknown]
  - Restlessness [Unknown]
  - Palpitations [Unknown]
  - Hypotension [Unknown]

NARRATIVE: CASE EVENT DATE: 20211001
